FAERS Safety Report 9455420 (Version 2)
Quarter: 2013Q3

REPORT INFORMATION
  Report Type: Report from Study
  Country: NL (occurrence: NL)
  Receive Date: 20130813
  Receipt Date: 20130827
  Transmission Date: 20140515
  Serious: Yes (Death)
  Sender: FDA-Public Use
  Company Number: PHHY2013NL086560

PATIENT
  Age: 46 Year
  Sex: Male

DRUGS (3)
  1. ZOMETA [Suspect]
     Indication: RENAL CELL CARCINOMA
     Dosage: 4 MG ONCE EVERY 4 WEEK
     Route: 041
  2. ZOMETA [Suspect]
     Dosage: 4 MG ONCE EVERY 4 WEEK
     Route: 041
     Dates: start: 20130711
  3. ZOMETA [Suspect]
     Dosage: 4 MG ONCE EVERY 4 WEEK
     Route: 041
     Dates: start: 20130808

REACTIONS (1)
  - Metastatic renal cell carcinoma [Fatal]
